FAERS Safety Report 23151283 (Version 3)
Quarter: 2024Q2

REPORT INFORMATION
  Report Type: Report from Study
  Country: JP (occurrence: JP)
  Receive Date: 20231107
  Receipt Date: 20240404
  Transmission Date: 20240716
  Serious: Yes (Hospitalization)
  Sender: FDA-Public Use
  Company Number: JP-ABBVIE-19K-087-3172903-00

PATIENT
  Age: 73 Year
  Sex: Female
  Weight: 43 kg

DRUGS (7)
  1. CARBIDOPA\LEVODOPA [Suspect]
     Active Substance: CARBIDOPA\LEVODOPA
     Indication: Parkinson^s disease
     Dosage: DAY 1, MD: 6 ML?CD: 3.1 ML/HR ? 16 HRS?ED: 1 ML/UNIT ? 0
     Route: 050
     Dates: start: 20180418, end: 20211108
  2. CARBIDOPA\LEVODOPA [Suspect]
     Active Substance: CARBIDOPA\LEVODOPA
     Dosage: DOSE INCREASED, ONE MONTH LATER FIRST DOSE
     Route: 050
     Dates: start: 2018
  3. CARBIDOPA\LEVODOPA [Suspect]
     Active Substance: CARBIDOPA\LEVODOPA
     Dosage: DOSE DECREASED
     Route: 050
  4. ROPINIROLE HYDROCHLORIDE [Concomitant]
     Active Substance: ROPINIROLE HYDROCHLORIDE
     Indication: Parkinson^s disease
     Route: 048
  5. ROPINIROLE HYDROCHLORIDE [Concomitant]
     Active Substance: ROPINIROLE HYDROCHLORIDE
     Indication: Parkinson^s disease
     Route: 048
  6. AMANTADINE HYDROCHLORIDE [Concomitant]
     Active Substance: AMANTADINE HYDROCHLORIDE
     Indication: Parkinson^s disease
     Dosage: 100 MILLIGRAM
     Route: 065
  7. CARBIDOPA MONOHYDRATE, LEVODOPA [Concomitant]
     Indication: Parkinson^s disease
     Route: 048

REACTIONS (3)
  - Small intestine ulcer [Recovering/Resolving]
  - Freezing phenomenon [Recovering/Resolving]
  - Bezoar [Unknown]

NARRATIVE: CASE EVENT DATE: 20211108
